FAERS Safety Report 10551782 (Version 2)
Quarter: 2014Q4

REPORT INFORMATION
  Report Type: Spontaneous
  Country: BR (occurrence: BR)
  Receive Date: 20141029
  Receipt Date: 20141204
  Transmission Date: 20150529
  Serious: Yes (Other)
  Sender: FDA-Public Use
  Company Number: BR-ASTELLAS-2014US015896

PATIENT
  Sex: Male

DRUGS (2)
  1. DIMORF [Concomitant]
     Active Substance: MORPHINE SULFATE
     Indication: PAIN
     Dosage: 20 MG, 1 IN 4 HR
     Route: 048
     Dates: start: 201402
  2. TARCEVA [Suspect]
     Active Substance: ERLOTINIB HYDROCHLORIDE
     Indication: LUNG NEOPLASM
     Route: 048
     Dates: start: 2013, end: 201410

REACTIONS (2)
  - Radiation skin injury [Recovered/Resolved]
  - Skin infection [Unknown]
